FAERS Safety Report 9614913 (Version 2)
Quarter: 2013Q4

REPORT INFORMATION
  Report Type: Spontaneous
  Country: US (occurrence: US)
  Receive Date: 20131011
  Receipt Date: 20131028
  Transmission Date: 20140711
  Serious: No
  Sender: FDA-Public Use
  Company Number: US-PFIZER INC-2013289155

PATIENT
  Sex: Female

DRUGS (6)
  1. FLAGYL [Suspect]
     Dosage: UNK
  2. PROMETHAZINE HCL [Suspect]
     Dosage: UNK
  3. NITROFURANTOIN [Suspect]
     Dosage: UNK
  4. PYRIDIUM [Suspect]
     Dosage: UNK
  5. CIPRO ^BAYER^ [Suspect]
     Dosage: UNK
  6. WELLBUTRIN [Suspect]
     Dosage: UNK

REACTIONS (1)
  - Drug hypersensitivity [Unknown]
